FAERS Safety Report 16405593 (Version 2)
Quarter: 2019Q2

REPORT INFORMATION
  Report Type: Spontaneous
  Country: PL (occurrence: PL)
  Receive Date: 20190607
  Receipt Date: 20190618
  Transmission Date: 20190711
  Serious: Yes (Other)
  Sender: FDA-Public Use
  Company Number: PL-PFIZER INC-2019240622

PATIENT
  Weight: 2.7 kg

DRUGS (8)
  1. DACARBAZINE. [Suspect]
     Active Substance: DACARBAZINE
     Dosage: 6 CYCLES OF ABVD - DOXORUBICIN, BLEOMYCIN, VINBLASTINE, DACARBAZINE
     Route: 064
  2. VINBLASTINE [Suspect]
     Active Substance: VINBLASTINE
     Dosage: UNK, CYCLIC (6 CYCLES OF ABVD - DOXORUBICIN, BLEOMYCIN, VINBLASTINE, DACARBAZINE)
     Route: 064
  3. CYTARABINE. [Suspect]
     Active Substance: CYTARABINE
     Dosage: UNK, CYCLIC (3 CYCLES OF ESHAP - ETOPOSIDE, METHYLPREDNISOLONE, CYTARABINE, CISPLATINUNK)
     Route: 064
  4. CISPLATIN. [Suspect]
     Active Substance: CISPLATIN
     Dosage: UNK, CYCLIC (3 CYCLES OF ESHAP - ETOPOSIDE, METHYLPREDNISOLONE, CYTARABINE, CISPLATIN)
     Route: 064
  5. ETOPOSIDE. [Suspect]
     Active Substance: ETOPOSIDE
     Dosage: UNK, CYCLIC (3 CYCLES OF ESHAP - ETOPOSIDE, METHYLPREDNISOLONE, CYTARABINE, CISPLATIN)
     Route: 064
  6. BLEOMYCIN [Suspect]
     Active Substance: BLEOMYCIN SULFATE
     Dosage: UNK, CYCLIC (6 CYCLES OF ABVD - DOXORUBICIN, BLEOMYCIN, VINBLASTINE, DACARBAZINE)
     Route: 064
  7. DOXORUBICIN HCL [Suspect]
     Active Substance: DOXORUBICIN HYDROCHLORIDE
     Dosage: UNK UNK, CYCLIC (6 CYCLES OF ABVD - DOXORUBICIN, BLEOMYCIN, VINBLASTINE, DACARBAZINE)
     Route: 064
  8. METHYLPREDNISOLONE. [Suspect]
     Active Substance: METHYLPREDNISOLONE
     Dosage: UNK, CYCLIC (3 CYCLES OF ESHAP - ETOPOSIDE, METHYLPREDNISOLONE, CYTARABINE, CISPLATIN)
     Route: 064

REACTIONS (2)
  - Maternal exposure during pregnancy [Unknown]
  - Premature labour [Unknown]
